FAERS Safety Report 6239563-2 (Version None)
Quarter: 2009Q2

REPORT INFORMATION
  Report Type: 
  Country: None (occurrence: None)
  Receive Date: 20090622
  Receipt Date: 20090610
  Transmission Date: 20091009
  Serious: Yes (Hospitalization)
  Sender: FDA-Public Use
  Company Number: US-WYE-H09265309

PATIENT
  Sex: Female
  Weight: 113.5 kg

DRUGS (8)
  1. PRISTIQ [Suspect]
     Indication: DEPRESSION
     Dosage: MAY-2008 TO MAR-2009 50 MG DAILY WITHDRAWN TEMPORARILY, RESUMED MAY-2009 AT 50 MG DAILY CONTINUES
     Route: 048
  2. METFORMIN HCL [Concomitant]
     Dosage: UNKNOWN DAILY DOSE
     Route: 048
  3. LISINOPRIL [Concomitant]
     Dosage: UNKNOWN DAILY DOSE
     Route: 048
  4. METOPROLOL SUCCINATE [Concomitant]
     Dosage: UNKNOWN DAILY DOSE
     Route: 048
  5. GLIPIZIDE [Concomitant]
     Dosage: UNKNOWN DAILY DOSE
     Route: 048
  6. ACETYLSALICYLIC ACID [Concomitant]
     Dosage: UNKNOWN DAILY DOSE
     Route: 048
  7. LASIX [Concomitant]
     Route: 048
  8. HYDROCORTISONE [Concomitant]
     Dosage: UNKNOWN DAILY DOSE
     Route: 048

REACTIONS (9)
  - AGITATION [None]
  - AMNESIA [None]
  - DELUSION [None]
  - DRUG WITHDRAWAL SYNDROME [None]
  - EMOTIONAL DISORDER [None]
  - HALLUCINATION, AUDITORY [None]
  - IRRITABILITY [None]
  - JUDGEMENT IMPAIRED [None]
  - MENTAL DISORDER [None]
